FAERS Safety Report 13344721 (Version 2)
Quarter: 2017Q1

REPORT INFORMATION
  Report Type: Spontaneous
  Country: NL (occurrence: NL)
  Receive Date: 20170317
  Receipt Date: 20170324
  Transmission Date: 20170428
  Serious: Yes (Death)
  Sender: FDA-Public Use
  Company Number: NL-UCBSA-2017009998

PATIENT
  Age: 70 Year
  Sex: Male
  Weight: 70 kg

DRUGS (2)
  1. KEPPRA [Suspect]
     Active Substance: LEVETIRACETAM
     Indication: EPILEPSY
     Dosage: 250 MG, 2X/DAY (BID)
     Dates: start: 201611
  2. MYSOLINE [Concomitant]
     Active Substance: PRIMIDONE
     Indication: EPILEPSY
     Dosage: UNK

REACTIONS (7)
  - Fall [Fatal]
  - Abnormal behaviour [Unknown]
  - Irritability [Unknown]
  - Anxiety [Unknown]
  - Anger [Unknown]
  - Physical assault [Unknown]
  - Fear [Unknown]

NARRATIVE: CASE EVENT DATE: 2016
